FAERS Safety Report 4682774-8 (Version None)
Quarter: 2005Q2

REPORT INFORMATION
  Report Type: 
  Country: None (occurrence: None)
  Receive Date: 20050531
  Receipt Date: 20041104
  Transmission Date: 20051028
  Serious: Yes (Hospitalization)
  Sender: FDA-Public Use
  Company Number: 200418562US

PATIENT
  Age: 26 Year
  Sex: Female
  Weight: 72.7 kg

DRUGS (2)
  1. LOVENOX [Suspect]
     Indication: FACTOR V LEIDEN MUTATION
     Dosage: 30 (PRE-FILLED SYRINGES) MG BID
     Dates: start: 20030405, end: 20030414
  2. WARFARIN SODIUM [Concomitant]

REACTIONS (3)
  - INJECTION SITE IRRITATION [None]
  - PROTHROMBIN TIME PROLONGED [None]
  - VAGINAL HAEMORRHAGE [None]
